FAERS Safety Report 24905438 (Version 1)
Quarter: 2025Q1

REPORT INFORMATION
  Report Type: Spontaneous
  Country: US (occurrence: US)
  Receive Date: 20250130
  Receipt Date: 20250130
  Transmission Date: 20250409
  Serious: No
  Sender: PHARMING GROUP
  Company Number: US-PHARMING-PHAUS2025000028

PATIENT

DRUGS (5)
  1. RUCONEST [Suspect]
     Active Substance: CONESTAT ALFA
     Indication: Hereditary angioedema with normal C1 esterase inhibitor
     Route: 042
     Dates: start: 202010
  2. PRENATAL VITAMINS                  /02014401/ [Concomitant]
     Indication: Supplementation therapy
     Dosage: 30 MILLILITER, QD
  3. MAGNESIUM [Concomitant]
     Active Substance: MAGNESIUM
     Indication: Supplementation therapy
     Dosage: 30 MILLILITER, QD
  4. LOVENOX [Concomitant]
     Active Substance: ENOXAPARIN SODIUM
     Indication: Thrombosis
     Dosage: 40 MILLIGRAM, QD
     Route: 042
  5. PROGESTERONE [Concomitant]
     Active Substance: PROGESTERONE
     Indication: Progesterone decreased

REACTIONS (1)
  - Maternal exposure during pregnancy [Unknown]
